FAERS Safety Report 8372802-0 (Version None)
Quarter: 2012Q2

REPORT INFORMATION
  Report Type: 
  Country: None (occurrence: None)
  Receive Date: 20120521
  Receipt Date: 20120515
  Transmission Date: 20120825
  Serious: Yes (Other)
  Sender: FDA-Public Use
  Company Number: BR-PFIZER INC-2012118745

PATIENT
  Age: 72 Year
  Sex: Female
  Weight: 65 kg

DRUGS (1)
  1. CELEBREX [Suspect]
     Indication: SCIATICA
     Dosage: 200 MG, ONE CAPSULE DAILY
     Route: 048
     Dates: start: 20080515

REACTIONS (2)
  - KNEE OPERATION [None]
  - PAIN [None]
